FAERS Safety Report 4937557-8 (Version None)
Quarter: 2006Q1

REPORT INFORMATION
  Report Type: 
  Country: None (occurrence: None)
  Receive Date: 20060308
  Receipt Date: 20060308
  Transmission Date: 20060701
  Serious: No
  Sender: FDA-Public Use
  Company Number: None

PATIENT
  Age: 14 Year
  Sex: Male
  Weight: 43 kg

DRUGS (1)
  1. AZATHIOPRINE [Suspect]
     Indication: CROHN'S DISEASE

REACTIONS (4)
  - ABDOMINAL PAIN [None]
  - BODY TEMPERATURE INCREASED [None]
  - NAUSEA [None]
  - VOMITING [None]
